FAERS Safety Report 16563249 (Version 3)
Quarter: 2019Q3

REPORT INFORMATION
  Report Type: Spontaneous
  Country: BG (occurrence: BG)
  Receive Date: 20190711
  Receipt Date: 20190906
  Transmission Date: 20191004
  Serious: Yes (Life-Threatening, Hospitalization)
  Sender: FDA-Public Use
  Company Number: PHHY2019BG143823

PATIENT
  Age: 61 Year
  Sex: Male

DRUGS (3)
  1. AMOXICILLIN. [Suspect]
     Active Substance: AMOXICILLIN
     Indication: ENDOCARDITIS
     Dosage: 1 G, BID
     Route: 042
  2. AMOXICILLIN. [Suspect]
     Active Substance: AMOXICILLIN
     Dosage: 2 G, QD
     Route: 042
  3. GENTAMICIN. [Suspect]
     Active Substance: GENTAMICIN
     Indication: ENDOCARDITIS
     Dosage: 80 MG, BID
     Route: 042
     Dates: start: 20180711, end: 20180715

REACTIONS (2)
  - Drug ineffective [Recovered/Resolved]
  - Disease recurrence [Unknown]
